FAERS Safety Report 24862135 (Version 1)
Quarter: 2025Q1

REPORT INFORMATION
  Report Type: Spontaneous
  Country: US (occurrence: US)
  Receive Date: 20250120
  Receipt Date: 20250120
  Transmission Date: 20250409
  Serious: Yes (Other)
  Sender: Unknown Manufacturer
  Company Number: US-MELINTA THERAPEUTICS, LLC-US-MLNT-25-00010

PATIENT

DRUGS (1)
  1. TOPROL XL [Suspect]
     Active Substance: METOPROLOL SUCCINATE
     Indication: Product used for unknown indication

REACTIONS (4)
  - Choking [Unknown]
  - Blood pressure abnormal [Unknown]
  - Bradycardia [Unknown]
  - Product quality issue [Unknown]
